FAERS Safety Report 15480056 (Version 1)
Quarter: 2018Q4

REPORT INFORMATION
  Report Type: Report from Study
  Country: CA (occurrence: CA)
  Receive Date: 20181009
  Receipt Date: 20181009
  Transmission Date: 20190205
  Serious: Yes (Other)
  Sender: FDA-Public Use
  Company Number: CA-GLAXOSMITHKLINE-CA2018GSK161328

PATIENT
  Age: 43 Year
  Sex: Female

DRUGS (5)
  1. ZENHALE [Suspect]
     Active Substance: FORMOTEROL FUMARATE\MOMETASONE FUROATE
     Indication: PRODUCT USED FOR UNKNOWN INDICATION
     Dosage: 200 UNK, BID
     Route: 055
  2. PREDNISON [Suspect]
     Active Substance: PREDNISONE
     Indication: PRODUCT USED FOR UNKNOWN INDICATION
     Dosage: UNK
  3. PULMICORT TURBUHALER [Suspect]
     Active Substance: BUDESONIDE
     Indication: PRODUCT USED FOR UNKNOWN INDICATION
     Dosage: 200 UNK, TID
     Route: 055
  4. AZITHROMYCIN ANHYDROUS. [Suspect]
     Active Substance: AZITHROMYCIN ANHYDROUS
     Indication: PRODUCT USED FOR UNKNOWN INDICATION
     Dosage: 500 MG, UNK
  5. SALBUTAMOL SULPHATE [Suspect]
     Active Substance: ALBUTEROL SULFATE
     Indication: PRODUCT USED FOR UNKNOWN INDICATION
     Dosage: 3 PUFF(S), PRN
     Dates: start: 2008

REACTIONS (19)
  - Cough [Unknown]
  - Ill-defined disorder [Unknown]
  - Dyspnoea exertional [Unknown]
  - Pyrexia [Unknown]
  - Chills [Unknown]
  - Asthma [Unknown]
  - Drug effect incomplete [Unknown]
  - Choking [Unknown]
  - Wheezing [Unknown]
  - Dyspnoea [Unknown]
  - Blood count abnormal [Unknown]
  - Sinusitis [Unknown]
  - Obstruction [Unknown]
  - Oral candidiasis [Unknown]
  - Arthralgia [Unknown]
  - Weight fluctuation [Unknown]
  - Rhinitis allergic [Unknown]
  - Dysphagia [Unknown]
  - Diarrhoea [Unknown]

NARRATIVE: CASE EVENT DATE: 20171207
